FAERS Safety Report 4370102-7 (Version None)
Quarter: 2004Q2

REPORT INFORMATION
  Report Type: 
  Country: None (occurrence: None)
  Receive Date: 20040527
  Receipt Date: 20040507
  Transmission Date: 20050107
  Serious: Yes (Hospitalization, Other)
  Sender: FDA-Public Use
  Company Number: GBS040314641

PATIENT
  Age: 61 Year
  Sex: Female

DRUGS (8)
  1. FORTEO [Suspect]
     Indication: OSTEOPOROSIS
     Dosage: 20 UG
     Dates: start: 20040304
  2. MORPHINE [Concomitant]
  3. OMEPRAZOLE [Concomitant]
  4. TYLEX [Concomitant]
  5. MXL (MORPHINE SULFATE) [Concomitant]
  6. SURMONTIL [Concomitant]
  7. NEURONTIN [Concomitant]
  8. BACLOFEN [Concomitant]

REACTIONS (5)
  - ASPIRATION [None]
  - LOSS OF CONSCIOUSNESS [None]
  - PNEUMONIA [None]
  - SEDATION [None]
  - VIITH NERVE PARALYSIS [None]
